FAERS Safety Report 5610900-2 (Version None)
Quarter: 2008Q1

REPORT INFORMATION
  Report Type: 
  Country: None (occurrence: None)
  Receive Date: 20080201
  Receipt Date: 20080123
  Transmission Date: 20080703
  Serious: Yes (Hospitalization)
  Sender: FDA-Public Use
  Company Number: FR-AVENTIS-200713538FR

PATIENT
  Age: 81 Year
  Sex: Male

DRUGS (8)
  1. LASILIX                            /00032601/ [Suspect]
     Route: 048
     Dates: end: 20070101
  2. ATACAND [Suspect]
     Route: 048
     Dates: end: 20070101
  3. ARANESP [Concomitant]
     Route: 058
  4. TARDYFERON                         /00023503/ [Concomitant]
     Route: 048
  5. IMOVANE [Concomitant]
     Route: 048
  6. SYMBICORT [Concomitant]
     Route: 055
  7. NITRODERM [Concomitant]
     Route: 062
     Dates: end: 20070101
  8. LANTUS [Concomitant]
     Route: 058

REACTIONS (4)
  - BRADYCARDIA [None]
  - CONDUCTION DISORDER [None]
  - HYPERKALAEMIA [None]
  - HYPONATRAEMIA [None]
